FAERS Safety Report 17635756 (Version 4)
Quarter: 2020Q2

REPORT INFORMATION
  Report Type: Spontaneous
  Country: JP (occurrence: JP)
  Receive Date: 20200406
  Receipt Date: 20200625
  Transmission Date: 20200713
  Serious: No
  Sender: FDA-Public Use
  Company Number: JP-AMGEN-JPNSP2020054024

PATIENT
  Age: 57 Year
  Sex: Male
  Weight: 70.5 kg

DRUGS (4)
  1. FOSRENOL [Concomitant]
     Active Substance: LANTHANUM CARBONATE
     Dosage: 2250 MG, EVERYDAY
     Route: 048
  2. MAXACALCITOL [Concomitant]
     Active Substance: MAXACALCITOL
     Dosage: 2.5 UG, Q56H
     Route: 065
  3. NESP [Concomitant]
     Active Substance: DARBEPOETIN ALFA
     Dosage: 90 UG, QW
     Route: 065
  4. PARSABIV [Suspect]
     Active Substance: ETELCALCETIDE HYDROCHLORIDE
     Indication: HYPERPARATHYROIDISM SECONDARY
     Dosage: 2.5 MG, Q56H
     Route: 010
     Dates: start: 20190812

REACTIONS (1)
  - Shunt stenosis [Recovered/Resolved]

NARRATIVE: CASE EVENT DATE: 20191224
